FAERS Safety Report 11097089 (Version 2)
Quarter: 2015Q3

REPORT INFORMATION
  Report Type: Report from Study
  Country: US (occurrence: US)
  Receive Date: 20150507
  Receipt Date: 20150904
  Transmission Date: 20151125
  Serious: Yes (Other)
  Sender: FDA-Public Use
  Company Number: US-SA-2015SA010164

PATIENT
  Age: 60 Year
  Sex: Male

DRUGS (2)
  1. AUBAGIO [Suspect]
     Active Substance: TERIFLUNOMIDE
     Indication: MULTIPLE SCLEROSIS
     Route: 048
     Dates: start: 20150120
  2. AUBAGIO [Suspect]
     Active Substance: TERIFLUNOMIDE
     Indication: MULTIPLE SCLEROSIS
     Route: 048
     Dates: start: 2015

REACTIONS (9)
  - Cerebrovascular accident [Unknown]
  - Depression [Unknown]
  - Memory impairment [Unknown]
  - Headache [Unknown]
  - Drug dose omission [Unknown]
  - Hypersomnia [Unknown]
  - Fatigue [Unknown]
  - Visual impairment [Unknown]
  - Blood pressure increased [Unknown]
